FAERS Safety Report 23795022 (Version 2)
Quarter: 2024Q2

REPORT INFORMATION
  Report Type: Spontaneous
  Country: US (occurrence: US)
  Receive Date: 20240429
  Receipt Date: 20240610
  Transmission Date: 20240716
  Serious: No
  Sender: FDA-Public Use
  Company Number: US-PFIZER INC-PV202400055000

PATIENT
  Age: 43 Year
  Sex: Female
  Weight: 81.633 kg

DRUGS (1)
  1. SOLU-CORTEF [Suspect]
     Active Substance: HYDROCORTISONE SODIUM SUCCINATE
     Indication: Addison^s disease
     Dosage: 100 MG (OVER 3 DAYS)
     Route: 058
     Dates: start: 2021

REACTIONS (1)
  - Off label use [Unknown]
